FAERS Safety Report 18951892 (Version 1)
Quarter: 2021Q1

REPORT INFORMATION
  Report Type: Spontaneous
  Country: CN (occurrence: CN)
  Receive Date: 20210301
  Receipt Date: 20210301
  Transmission Date: 20210420
  Serious: Yes (Hospitalization)
  Sender: FDA-Public Use
  Company Number: CN-B.I. PHARMACEUTICALS,INC./RIDGEFIELD-2021-BI-085060

PATIENT
  Age: 50 Year
  Sex: Male

DRUGS (4)
  1. GILOTRIF [Suspect]
     Active Substance: AFATINIB
     Indication: CHEMOTHERAPY
     Route: 048
     Dates: start: 20200525, end: 20201114
  2. GILOTRIF [Suspect]
     Active Substance: AFATINIB
     Route: 048
  3. CARBOPLATIN. [Concomitant]
     Active Substance: CARBOPLATIN
  4. PEMETREXED. [Concomitant]
     Active Substance: PEMETREXED

REACTIONS (4)
  - Mouth ulceration [Unknown]
  - Liver injury [Recovering/Resolving]
  - Rash [Unknown]
  - Diarrhoea [Unknown]

NARRATIVE: CASE EVENT DATE: 20200525
